FAERS Safety Report 6249611-1 (Version None)
Quarter: 2009Q2

REPORT INFORMATION
  Report Type: 
  Country: None (occurrence: None)
  Receive Date: 20090625
  Receipt Date: 20090625
  Transmission Date: 20091009
  Serious: No
  Sender: FDA-Public Use
  Company Number: None

PATIENT
  Sex: Male
  Weight: 95.2554 kg

DRUGS (1)
  1. ADVODART GLAXOMSMITH KLINE [Suspect]
     Indication: PROSTATOMEGALY
     Dosage: 1 DAILY1 TABLET PO
     Route: 048

REACTIONS (3)
  - BREAST DISORDER [None]
  - BREAST ENLARGEMENT [None]
  - BREAST PAIN [None]
